FAERS Safety Report 6370643-7 (Version None)
Quarter: 2009Q3

REPORT INFORMATION
  Report Type: 
  Country: None (occurrence: None)
  Receive Date: 20090923
  Receipt Date: 20090909
  Transmission Date: 20100115
  Serious: Yes (Hospitalization)
  Sender: FDA-Public Use
  Company Number: GB-MYLANLABS-2009S1015847

PATIENT
  Age: 21 Year
  Sex: Male

DRUGS (11)
  1. AZATHIOPRINE [Suspect]
     Indication: COLITIS ULCERATIVE
     Dosage: STARTING DOSE: 25 MG/DAY
     Dates: start: 20050901, end: 20080101
  2. AZATHIOPRINE [Suspect]
     Dosage: FINAL DOSE
     Dates: start: 20050901, end: 20080101
  3. AZATHIOPRINE [Suspect]
     Dates: start: 20050901, end: 20080101
  4. AZATHIOPRINE [Suspect]
     Dates: start: 20050901, end: 20080101
  5. HYDROCORTISONE [Suspect]
     Indication: COLITIS ULCERATIVE
     Route: 042
     Dates: start: 20080201
  6. COTRIM [Suspect]
     Indication: PNEUMOCYSTIS JIROVECI PNEUMONIA
     Route: 042
  7. COTRIM [Suspect]
     Dosage: 1-WEEK COURSE OF ORAL COTRIMOXAZOLE
     Route: 048
  8. HYDROCORTISONE [Concomitant]
     Route: 054
     Dates: start: 20080201
  9. ASACOL [Concomitant]
     Indication: COLITIS ULCERATIVE
     Dates: start: 20050101
  10. PREDNISOLONE [Concomitant]
     Indication: COLITIS ULCERATIVE
     Dates: start: 20080101
  11. ASACOL [Concomitant]
     Route: 048
     Dates: start: 20050101

REACTIONS (4)
  - DRUG ERUPTION [None]
  - LEUKOPENIA [None]
  - PNEUMOCYSTIS JIROVECI PNEUMONIA [None]
  - PNEUMOMEDIASTINUM [None]
